FAERS Safety Report 4652352-5 (Version None)
Quarter: 2005Q2

REPORT INFORMATION
  Report Type: 
  Country: None (occurrence: None)
  Receive Date: 20050504
  Receipt Date: 20050429
  Transmission Date: 20051028
  Serious: Yes (Hospitalization)
  Sender: FDA-Public Use
  Company Number: FR-GLAXOSMITHKLINE-B0379671A

PATIENT
  Age: 57 Year
  Sex: Female
  Weight: 55 kg

DRUGS (6)
  1. CLAMOXYL [Suspect]
     Dosage: 1.5G TWICE PER DAY
     Route: 042
     Dates: start: 20050210, end: 20050210
  2. ZOVIRAX [Suspect]
     Dosage: 450MG PER DAY
     Route: 042
     Dates: start: 20050210, end: 20050210
  3. CLAFORAN [Suspect]
     Dosage: 3G TWICE PER DAY
     Route: 042
     Dates: start: 20050210, end: 20050210
  4. GENTAMICIN [Suspect]
     Route: 065
     Dates: start: 20050210, end: 20050210
  5. ROCEPHIN [Suspect]
     Dosage: 4G PER DAY
     Route: 042
     Dates: start: 20050211, end: 20050211
  6. OFLOCET [Concomitant]
     Dosage: 200MG TWICE PER DAY
     Route: 048
     Dates: start: 20050211, end: 20050222

REACTIONS (7)
  - ABDOMINAL PAIN [None]
  - APHASIA [None]
  - COUGH [None]
  - MENINGEAL DISORDER [None]
  - MUSCULOSKELETAL STIFFNESS [None]
  - PANCREATITIS ACUTE [None]
  - PYREXIA [None]
